FAERS Safety Report 18987420 (Version 2)
Quarter: 2021Q1

REPORT INFORMATION
  Report Type: Spontaneous
  Country: FR (occurrence: FR)
  Receive Date: 20210309
  Receipt Date: 20210330
  Transmission Date: 20210420
  Serious: Yes (Death, Other)
  Sender: FDA-Public Use
  Company Number: FR-BRISTOL-MYERS SQUIBB COMPANY-BMS-2021-019564

PATIENT
  Age: 89 Year
  Sex: Female
  Weight: 70 kg

DRUGS (4)
  1. COUMADINE [Suspect]
     Active Substance: WARFARIN SODIUM
     Indication: PRODUCT USED FOR UNKNOWN INDICATION
     Dosage: 1 MILLIGRAM
     Route: 065
  2. ECONAZOLE. [Suspect]
     Active Substance: ECONAZOLE NITRATE
     Indication: SKIN IRRITATION
     Dosage: MYLAN 1 CREAM, 1 TO 2X/DAY
     Route: 003
     Dates: start: 20210126, end: 20210202
  3. ECONAZOLE. [Suspect]
     Active Substance: ECONAZOLE NITRATE
     Indication: SKIN ATROPHY
  4. ECONAZOLE. [Suspect]
     Active Substance: ECONAZOLE NITRATE
     Indication: FUNGAL INFECTION

REACTIONS (9)
  - Skin irritation [Unknown]
  - Melaena [Not Recovered/Not Resolved]
  - Rectal haemorrhage [Unknown]
  - Internal haemorrhage [Fatal]
  - Diarrhoea haemorrhagic [Unknown]
  - International normalised ratio increased [Fatal]
  - Haemorrhagic stroke [Not Recovered/Not Resolved]
  - General physical health deterioration [Not Recovered/Not Resolved]
  - Skin atrophy [Unknown]

NARRATIVE: CASE EVENT DATE: 20210202
